FAERS Safety Report 7618608-9 (Version None)
Quarter: 2011Q3

REPORT INFORMATION
  Report Type: 
  Country: None (occurrence: None)
  Receive Date: 20110718
  Receipt Date: 20110708
  Transmission Date: 20111222
  Serious: Yes (Life-Threatening)
  Sender: FDA-Public Use
  Company Number: IT-BRISTOL-MYERS SQUIBB COMPANY-15884778

PATIENT
  Age: 82 Year
  Sex: Male

DRUGS (4)
  1. COUMADIN [Suspect]
     Indication: DEEP VEIN THROMBOSIS
     Dosage: INTERRUPTED ON 27-JUN-2011
     Dates: start: 20110101
  2. TAPAZOLE [Suspect]
     Dosage: INTERRUPTED ON 12-JUN-2011
     Dates: start: 20110101
  3. INSULIN [Concomitant]
  4. PREDNISONE [Concomitant]

REACTIONS (1)
  - HEPATITIS CHOLESTATIC [None]
